FAERS Safety Report 5218847-0 (Version None)
Quarter: 2007Q1

REPORT INFORMATION
  Report Type: 
  Country: None (occurrence: None)
  Receive Date: 20070125
  Receipt Date: 20070116
  Transmission Date: 20070707
  Serious: Yes (Hospitalization, Other)
  Sender: FDA-Public Use
  Company Number: GB-JNJFOC-20070103400

PATIENT
  Sex: Male
  Weight: 77 kg

DRUGS (8)
  1. REMICADE [Suspect]
     Indication: RHEUMATOID ARTHRITIS
     Route: 042
  2. PREDNISOLONE [Concomitant]
     Route: 065
  3. TEMAZEPAM [Concomitant]
     Route: 065
  4. AMYTRIPTYLINE [Concomitant]
     Route: 065
  5. METHOTREXATE [Concomitant]
     Route: 065
  6. CALCICHEW [Concomitant]
     Route: 065
  7. FOLIC ACID [Concomitant]
     Route: 065
  8. CO-CODAMOL [Concomitant]
     Route: 065

REACTIONS (1)
  - ADVERSE DRUG REACTION [None]
